FAERS Safety Report 6739098-4 (Version None)
Quarter: 2010Q2

REPORT INFORMATION
  Report Type: 
  Country: None (occurrence: None)
  Receive Date: 20100525
  Receipt Date: 20100518
  Transmission Date: 20101027
  Serious: Yes (Hospitalization)
  Sender: FDA-Public Use
  Company Number: US-BIOGENIDEC-2010BI015251

PATIENT
  Age: 47 Year
  Sex: Female

DRUGS (2)
  1. AVONEX [Suspect]
     Indication: MULTIPLE SCLEROSIS
     Route: 030
     Dates: start: 20031210, end: 20090301
  2. AVONEX [Suspect]
     Route: 030
     Dates: start: 20100201

REACTIONS (2)
  - ROAD TRAFFIC ACCIDENT [None]
  - SPINAL FRACTURE [None]
